FAERS Safety Report 8619474-5 (Version None)
Quarter: 2012Q3

REPORT INFORMATION
  Report Type: 
  Country: None (occurrence: None)
  Receive Date: 20120824
  Receipt Date: 20120822
  Transmission Date: 20120928
  Serious: Yes (Other)
  Sender: FDA-Public Use
  Company Number: US-PFIZER INC-2012162717

PATIENT
  Age: 63 Year
  Sex: Female
  Weight: 64.399 kg

DRUGS (26)
  1. MOBIC [Suspect]
     Indication: OEDEMA PERIPHERAL
     Dosage: UNK
  2. IBUPROFEN [Suspect]
     Indication: OEDEMA PERIPHERAL
  3. NAPROXEN (ALEVE) [Suspect]
     Indication: ARTHRITIS
  4. ASPIRIN [Concomitant]
     Dosage: UNK
     Dates: start: 20110101
  5. DOXYCYCLINE [Concomitant]
     Indication: LYME DISEASE
     Dosage: 100 MG, 2X/DAY
     Dates: start: 20120601
  6. CELEBREX [Suspect]
     Indication: JOINT SWELLING
     Dosage: 200 MG, 1X/DAY
     Dates: start: 20120703
  7. PLAQUENIL [Suspect]
     Indication: JOINT SWELLING
  8. PLAQUENIL [Suspect]
     Indication: ARTHRITIS
  9. IBUPROFEN [Suspect]
     Indication: ARTHRITIS
  10. PREDNISONE TAB [Suspect]
     Indication: JOINT SWELLING
  11. MOBIC [Suspect]
     Indication: ARTHRITIS
  12. METHYLPREDNISOLONE ACETATE [Concomitant]
     Indication: OEDEMA PERIPHERAL
     Dosage: UNK
  13. METHYLPREDNISOLONE ACETATE [Concomitant]
     Indication: ARTHRITIS
  14. CELEBREX [Suspect]
     Indication: ARTHRITIS
  15. NAPROXEN (ALEVE) [Suspect]
     Indication: JOINT SWELLING
  16. CELEBREX [Suspect]
     Indication: OEDEMA PERIPHERAL
     Dosage: 200 MG, DAILY
     Dates: start: 20120201, end: 20120101
  17. IBUPROFEN [Suspect]
     Indication: JOINT SWELLING
     Dosage: UNK
  18. NAPROXEN (ALEVE) [Suspect]
     Indication: OEDEMA PERIPHERAL
     Dosage: UNK
  19. SULFASALAZINE [Suspect]
     Indication: OEDEMA PERIPHERAL
     Dosage: UNK
  20. SULFASALAZINE [Suspect]
     Indication: ARTHRITIS
  21. PLAQUENIL [Suspect]
     Indication: OEDEMA PERIPHERAL
     Dosage: UNK
  22. MOBIC [Suspect]
     Indication: JOINT SWELLING
  23. METHYLPREDNISOLONE ACETATE [Concomitant]
     Indication: JOINT SWELLING
  24. SULFASALAZINE [Suspect]
     Indication: JOINT SWELLING
  25. AZITHROMYCIN [Suspect]
     Dosage: UNK
  26. PREDNISONE TAB [Suspect]
     Indication: OEDEMA PERIPHERAL
     Dosage: UNK

REACTIONS (7)
  - DRUG INEFFECTIVE [None]
  - JOINT SWELLING [None]
  - HYPERSENSITIVITY [None]
  - ANAPHYLACTIC REACTION [None]
  - LIP BLISTER [None]
  - DRUG INTOLERANCE [None]
  - OEDEMA PERIPHERAL [None]
